FAERS Safety Report 5563229-5 (Version None)
Quarter: 2007Q4

REPORT INFORMATION
  Report Type: 
  Country: None (occurrence: None)
  Receive Date: 20071213
  Receipt Date: 20071213
  Transmission Date: 20080405
  Serious: Yes (Other)
  Sender: FDA-Public Use
  Company Number: None

PATIENT
  Sex: Male
  Weight: 55.3388 kg

DRUGS (14)
  1. LINEZOLID [Suspect]
     Indication: CELLULITIS
     Dosage: 600MG BID PO
     Route: 048
     Dates: start: 20071112, end: 20071126
  2. CHLORAL HYDRATE [Concomitant]
  3. ACETAMINOPHEN [Concomitant]
  4. AMBIEN [Concomitant]
  5. COLACE [Concomitant]
  6. DEPAKOTE [Concomitant]
  7. FIBERLAX [Concomitant]
  8. GEMFIBROZIL [Concomitant]
  9. MOLATONIN [Concomitant]
  10. SEROQUEL [Concomitant]
  11. VIT E [Concomitant]
  12. GLUCOSAMINE/CHONDROITIN MSM [Concomitant]
  13. LACTOBACILLUS [Concomitant]
  14. SYNTHROID [Concomitant]

REACTIONS (3)
  - ANAEMIA [None]
  - LEUKOPENIA [None]
  - THROMBOCYTOPENIA [None]
